FAERS Safety Report 6802744-0 (Version None)
Quarter: 2010Q2

REPORT INFORMATION
  Report Type: 
  Country: None (occurrence: None)
  Receive Date: 20100628
  Receipt Date: 20100615
  Transmission Date: 20101027
  Serious: Yes (Hospitalization)
  Sender: FDA-Public Use
  Company Number: CA-JNJFOC-20100605390

PATIENT
  Age: 58 Year
  Sex: Male
  Weight: 86 kg

DRUGS (9)
  1. GOLIMUMAB [Suspect]
     Indication: RHEUMATOID ARTHRITIS
     Route: 058
  2. PERCOCET [Suspect]
     Indication: ARTHRALGIA
     Route: 048
  3. DILAUDID [Suspect]
     Indication: ARTHRALGIA
     Route: 048
  4. METHOTREXATE [Concomitant]
     Indication: RHEUMATOID ARTHRITIS
     Route: 048
  5. FOLIC ACID [Concomitant]
     Indication: PROPHYLAXIS
     Route: 048
  6. ATACAND HCT [Concomitant]
     Indication: HYPERTENSION
     Route: 048
  7. NORVASC [Concomitant]
     Indication: HYPERTENSION
     Route: 048
  8. LIPITOR [Concomitant]
     Indication: DYSLIPIDAEMIA
     Route: 048
  9. LOSEC I.V. [Concomitant]
     Indication: PROPHYLAXIS
     Route: 048

REACTIONS (2)
  - ABDOMINAL PAIN [None]
  - VOMITING [None]
